FAERS Safety Report 5266030-5 (Version None)
Quarter: 2007Q1

REPORT INFORMATION
  Report Type: 
  Country: None (occurrence: None)
  Receive Date: 20070313
  Receipt Date: 20070313
  Transmission Date: 20070707
  Serious: Yes (Other)
  Sender: FDA-Public Use
  Company Number: None

PATIENT
  Age: 45 Year
  Sex: Male
  Weight: 81.6475 kg

DRUGS (1)
  1. AVELOX [Suspect]
     Indication: CHRONIC SINUSITIS
     Dosage: 400MG 1 TABLET DAILY PO
     Route: 048
     Dates: start: 20070203, end: 20070223

REACTIONS (3)
  - HEPATITIS ACUTE [None]
  - LIVER INJURY [None]
  - VIRAL INFECTION [None]
